FAERS Safety Report 5096467-9 (Version None)
Quarter: 2006Q3

REPORT INFORMATION
  Report Type: 
  Country: None (occurrence: None)
  Receive Date: 20060905
  Receipt Date: 20060704
  Transmission Date: 20061208
  Serious: Yes (Other)
  Sender: FDA-Public Use
  Company Number: GB-SANOFI-SYNTHELABO-A01200605127

PATIENT
  Age: 45 Year
  Sex: Female

DRUGS (4)
  1. FLUOROURACIL [Concomitant]
     Indication: COLON CANCER
     Dosage: UNK
     Route: 065
  2. FLUOROURACIL [Concomitant]
     Indication: METASTASES TO OVARY
     Dosage: UNK
     Route: 065
  3. ELOXATIN [Suspect]
     Indication: COLON CANCER
     Dosage: UNK
     Route: 065
  4. ELOXATIN [Suspect]
     Indication: METASTASES TO OVARY
     Dosage: UNK
     Route: 065

REACTIONS (5)
  - BACK PAIN [None]
  - FATIGUE [None]
  - FLATULENCE [None]
  - NEUROPATHY PERIPHERAL [None]
  - VOCAL CORD PARALYSIS [None]
